FAERS Safety Report 10245414 (Version 2)
Quarter: 2014Q2

REPORT INFORMATION
  Report Type: Report from Study
  Country: DE (occurrence: DE)
  Receive Date: 20140618
  Receipt Date: 20140618
  Transmission Date: 20141212
  Serious: Yes (Hospitalization)
  Sender: FDA-Public Use
  Company Number: PHHO2012DE001785

PATIENT
  Sex: 0

DRUGS (20)
  1. BELOC-ZOC MITE [Concomitant]
     Indication: HYPERTENSION
     Dosage: UNK
     Dates: start: 20110513
  2. PARACODIN                               /GFR/ [Concomitant]
     Indication: PROPHYLAXIS
     Dosage: UNK
     Dates: start: 20110513
  3. MCP [Concomitant]
     Indication: PROPHYLAXIS OF NAUSEA AND VOMITING
     Dosage: UNK
     Dates: start: 20111227
  4. ONDANSETRON [Concomitant]
     Indication: PROPHYLAXIS OF NAUSEA AND VOMITING
     Dosage: UNK
     Dates: start: 20111227
  5. METOPROLOL [Concomitant]
     Indication: HYPERTENSION
     Dosage: UNK
     Dates: start: 20100506, end: 20110512
  6. TAVANIC [Concomitant]
     Indication: PYREXIA
     Dosage: UNK
     Dates: start: 20111218, end: 20111227
  7. AUGMENTIN [Concomitant]
     Indication: C-REACTIVE PROTEIN INCREASED
     Dosage: UNK
     Dates: start: 20120109, end: 20120116
  8. NOVALGIN [Concomitant]
     Indication: ANALGESIC THERAPY
     Dosage: UNK
     Dates: start: 20111227
  9. NEURO-RATIOPHARM N [Concomitant]
     Indication: POLYNEUROPATHY
     Dosage: UNK
     Dates: start: 20111227
  10. AVELOX [Concomitant]
     Indication: GASTRITIS
     Dosage: UNK
     Dates: start: 20120120
  11. AFINITOR [Suspect]
     Indication: LARGE CELL LUNG CANCER
     Dosage: 5 MG, UNK
     Route: 048
     Dates: start: 20111216, end: 20120127
  12. AFINITOR [Suspect]
     Dosage: 5 MG, UNK
     Route: 048
     Dates: start: 20120213
  13. PACLITAXEL [Suspect]
     Indication: LARGE CELL LUNG CANCER
     Dosage: 175 MG/M2, UNK
     Route: 042
     Dates: start: 20111216, end: 20120109
  14. PACLITAXEL [Suspect]
     Dosage: 175 MG/M2, UNK
     Route: 042
     Dates: start: 20120213
  15. CARBOPLATIN [Suspect]
     Indication: LARGE CELL LUNG CANCER
     Dosage: AUC 5
     Route: 042
     Dates: start: 20111216, end: 20120109
  16. CARBOPLATIN [Suspect]
     Dosage: AUC 5
     Route: 042
     Dates: start: 20120213
  17. VOTUM [Concomitant]
     Indication: HYPERTENSION
     Dosage: UNK
  18. ASS [Concomitant]
     Indication: CORONARY ARTERY DISEASE
     Dosage: UNK
     Dates: start: 20100506
  19. ATACAND [Concomitant]
     Indication: HYPERTENSION
  20. SIMVASTATIN [Concomitant]
     Indication: HYPERCHOLESTEROLAEMIA

REACTIONS (3)
  - Pneumonia [Recovered/Resolved]
  - Pleural effusion [Recovered/Resolved]
  - Atrial fibrillation [Recovered/Resolved]
